FAERS Safety Report 8224715-2 (Version None)
Quarter: 2012Q1

REPORT INFORMATION
  Report Type: 
  Country: None (occurrence: None)
  Receive Date: 20120321
  Receipt Date: 20120312
  Transmission Date: 20120608
  Serious: Yes (Hospitalization, Other)
  Sender: FDA-Public Use
  Company Number: PHHY2012DE013409

PATIENT
  Sex: Female
  Weight: 60 kg

DRUGS (9)
  1. AMLODIPINE [Concomitant]
     Dosage: 5 MG/DAY
  2. SIMVASTATIN (STATINS) [Concomitant]
     Indication: HYPERCHOLESTEROLAEMIA
     Dosage: 20 MG/DAY
  3. DIOVAN HCT [Suspect]
     Indication: HYPERTENSION
     Dosage: 1 DF, PER DAY
     Dates: start: 20080528, end: 20100126
  4. ALLOPURINOL [Suspect]
     Indication: HYPERURICAEMIA
     Dosage: 300 MG/DAY
     Dates: end: 20110607
  5. DIURETICS [Suspect]
     Indication: HYPERTENSION
     Dates: start: 20090707
  6. METOPROLOL TARTRATE [Concomitant]
     Indication: HYPERTENSION
     Dosage: 100 MG/DAY
  7. RASILEZ [Suspect]
     Indication: HYPERTENSION
     Dosage: 150 MG, PER DAY
     Dates: start: 20081106, end: 20100126
  8. RASILEZ HCT [Suspect]
     Indication: HYPERTENSION
     Dosage: 1 DF
     Dates: start: 20100126
  9. ANTIDEPRESSANTS [Concomitant]

REACTIONS (3)
  - MALAISE [None]
  - BLOOD CREATININE INCREASED [None]
  - RENAL FAILURE ACUTE [None]
